FAERS Safety Report 10125543 (Version 1)
Quarter: 2014Q2

REPORT INFORMATION
  Report Type: Spontaneous
  Country: TR (occurrence: TR)
  Receive Date: 20140425
  Receipt Date: 20140425
  Transmission Date: 20141212
  Serious: Yes (Other)
  Sender: FDA-Public Use
  Company Number: TR-JNJFOC-20140412042

PATIENT
  Sex: 0

DRUGS (16)
  1. DOXORUBICIN [Suspect]
     Indication: NEUROBLASTOMA
     Route: 042
  2. DOXORUBICIN [Suspect]
     Indication: RHABDOMYOSARCOMA
     Route: 042
  3. DOXORUBICIN [Suspect]
     Indication: PRIMITIVE NEUROECTODERMAL TUMOUR
     Route: 042
  4. DOXORUBICIN [Suspect]
     Indication: NEPHROBLASTOMA
     Route: 042
  5. DOXORUBICIN [Suspect]
     Indication: OSTEOSARCOMA
     Route: 042
  6. DOXORUBICIN [Suspect]
     Indication: NON-HODGKIN^S LYMPHOMA
     Route: 042
  7. DOXORUBICIN [Suspect]
     Indication: HODGKIN^S DISEASE
     Route: 042
  8. DAUNORUBICIN [Suspect]
     Indication: OSTEOSARCOMA
     Route: 065
  9. DAUNORUBICIN [Suspect]
     Indication: NEUROBLASTOMA
     Route: 065
  10. DAUNORUBICIN [Suspect]
     Indication: RHABDOMYOSARCOMA
     Route: 065
  11. DAUNORUBICIN [Suspect]
     Indication: PRIMITIVE NEUROECTODERMAL TUMOUR
     Route: 065
  12. DAUNORUBICIN [Suspect]
     Indication: NEPHROBLASTOMA
     Route: 065
  13. DAUNORUBICIN [Suspect]
     Indication: NON-HODGKIN^S LYMPHOMA
     Route: 065
  14. DAUNORUBICIN [Suspect]
     Indication: HODGKIN^S DISEASE
     Route: 065
  15. DAUNORUBICIN [Suspect]
     Indication: OSTEOSARCOMA
     Route: 065
  16. RADIOTHERAPY [Concomitant]
     Dosage: MEAN RADIATION DOSE WAS 22  /- 7 (RANGE 15-36) GY
     Route: 065

REACTIONS (8)
  - Left ventricular dysfunction [Unknown]
  - Cardiotoxicity [Unknown]
  - Neoplasm malignant [Not Recovered/Not Resolved]
  - Arrhythmia [Unknown]
  - Heart rate increased [Unknown]
  - Electrocardiogram QT prolonged [Unknown]
  - Hypokinesia [Unknown]
  - Nuclear magnetic resonance imaging abnormal [Unknown]
